FAERS Safety Report 7096158-9 (Version None)
Quarter: 2010Q4

REPORT INFORMATION
  Report Type: 
  Country: None (occurrence: None)
  Receive Date: 20101111
  Receipt Date: 20101101
  Transmission Date: 20110411
  Serious: Yes (Other)
  Sender: FDA-Public Use
  Company Number: JP-ROCHE-736146

PATIENT
  Sex: Female

DRUGS (1)
  1. HERCEPTIN [Suspect]
     Dosage: DOSE IS UNCERTAIN
     Route: 041

REACTIONS (1)
  - HEMIANOPIA HETERONYMOUS [None]
